FAERS Safety Report 18985015 (Version 1)
Quarter: 2021Q1

REPORT INFORMATION
  Report Type: Other
  Country: US (occurrence: US)
  Receive Date: 20210309
  Receipt Date: 20210309
  Transmission Date: 20210420
  Serious: Yes (Congenital Anomaly)
  Sender: FDA-Public Use
  Company Number: US-ORCHID HEALTHCARE-2107743

PATIENT
  Sex: Male

DRUGS (4)
  1. VENLAFAXINE HYDROCHLORIDE. [Suspect]
     Active Substance: VENLAFAXINE HYDROCHLORIDE
     Indication: POST-TRAUMATIC STRESS DISORDER
     Route: 065
  2. BUPROPION HYDROCHLORIDE. [Suspect]
     Active Substance: BUPROPION HYDROCHLORIDE
     Route: 065
  3. VENLAFAXINE HYDROCHLORIDE. [Suspect]
     Active Substance: VENLAFAXINE HYDROCHLORIDE
     Indication: BIPOLAR DISORDER
     Route: 065
  4. QUETIAPINE. [Suspect]
     Active Substance: QUETIAPINE
     Route: 065

REACTIONS (5)
  - Foetal exposure during pregnancy [Recovered/Resolved]
  - Neonatal toxicity [Recovered/Resolved]
  - Encephalopathy [Recovered/Resolved]
  - Hypertonia [Recovered/Resolved]
  - Hyperreflexia [Recovered/Resolved]
